FAERS Safety Report 5031698-5 (Version None)
Quarter: 2006Q2

REPORT INFORMATION
  Report Type: 
  Country: None (occurrence: None)
  Receive Date: 20060616
  Receipt Date: 20060530
  Transmission Date: 20061013
  Serious: Yes (Other)
  Sender: FDA-Public Use
  Company Number: US-2006-000418

PATIENT
  Age: 49 Year
  Sex: Female
  Weight: 93 kg

DRUGS (6)
  1. BETASERON [Suspect]
     Indication: MULTIPLE SCLEROSIS
     Dosage: 8 MIU, EVERY 2 D, SUBCUTANEOUS
     Route: 058
     Dates: start: 19940101, end: 20050101
  2. AVONEX [Suspect]
     Indication: MULTIPLE SCLEROSIS
     Dates: start: 20050101
  3. SYNTHROID [Concomitant]
  4. ANTIHYPERTENSIVES [Concomitant]
  5. XANAX [Concomitant]
  6. NEURONTIN [Concomitant]

REACTIONS (1)
  - BREAST CANCER RECURRENT [None]
